FAERS Safety Report 5294389-1 (Version None)
Quarter: 2007Q2

REPORT INFORMATION
  Report Type: 
  Country: None (occurrence: None)
  Receive Date: 20070412
  Receipt Date: 20070402
  Transmission Date: 20071010
  Serious: Yes (Hospitalization)
  Sender: FDA-Public Use
  Company Number: FR-BRISTOL-MYERS SQUIBB COMPANY-13741731

PATIENT
  Age: 63 Year
  Sex: Male

DRUGS (10)
  1. ENDOXAN INJ [Suspect]
     Indication: NEUROENDOCRINE CARCINOMA
     Route: 042
     Dates: start: 20070212
  2. ETOPOSIDE [Suspect]
     Indication: NEUROENDOCRINE CARCINOMA
     Route: 042
     Dates: start: 20070212
  3. DOXORUBICIN HCL [Suspect]
     Indication: NEUROENDOCRINE CARCINOMA
     Route: 042
     Dates: start: 20070212
  4. CALCIDOSE [Concomitant]
  5. PREGABALIN [Concomitant]
  6. ARGININE [Concomitant]
  7. RIVOTRIL [Concomitant]
  8. VERAPAMIL [Concomitant]
  9. ZOLPIDEM [Concomitant]
  10. TARDYFERON-FOL [Concomitant]

REACTIONS (3)
  - ACUTE PULMONARY OEDEMA [None]
  - MYOCARDIAL ISCHAEMIA [None]
  - VENTRICULAR EXTRASYSTOLES [None]
